FAERS Safety Report 10220649 (Version 1)
Quarter: 2014Q2

REPORT INFORMATION
  Report Type: Spontaneous
  Country: RU (occurrence: RU)
  Receive Date: 20140606
  Receipt Date: 20140606
  Transmission Date: 20141212
  Serious: Yes (Other)
  Sender: FDA-Public Use
  Company Number: RU-TEVA-484411ISR

PATIENT
  Age: 51 Year
  Sex: Female

DRUGS (3)
  1. FINLEPSIN RETARD [Suspect]
     Indication: EPILEPSY
  2. PHENOBARBITAL [Concomitant]
     Indication: EPILEPSY
  3. DEPAKINE CHRONO [Concomitant]
     Indication: EPILEPSY

REACTIONS (4)
  - Convulsion [Not Recovered/Not Resolved]
  - Drug ineffective [Not Recovered/Not Resolved]
  - Depressed mood [Not Recovered/Not Resolved]
  - Product substitution issue [None]
